FAERS Safety Report 4705915-2 (Version None)
Quarter: 2005Q2

REPORT INFORMATION
  Report Type: 
  Country: None (occurrence: None)
  Receive Date: 20050629
  Receipt Date: 20050324
  Transmission Date: 20051028
  Serious: Yes (Hospitalization)
  Sender: FDA-Public Use
  Company Number: PAR_0073_2005

PATIENT
  Age: 74 Year
  Sex: Male

DRUGS (6)
  1. ISOPTIN [Suspect]
     Indication: ESSENTIAL HYPERTENSION
     Dosage: 240 MG QDAY PO
     Route: 048
     Dates: end: 20041217
  2. METOPROLOL SUCCINATE [Suspect]
     Indication: ESSENTIAL HYPERTENSION
     Dosage: 100 MG QDAY PO
     Route: 048
     Dates: start: 20040601, end: 20041217
  3. ATORVASTATIN CALCIUM [Suspect]
     Indication: HYPERLIPIDAEMIA
     Dosage: 40 MG QDAY
     Dates: start: 20041202
  4. RAMIPRIL [Suspect]
     Indication: ESSENTIAL HYPERTENSION
     Dosage: 2.5 MG BID PO
     Route: 048
     Dates: start: 20041209
  5. PHENPROCOUMON [Concomitant]
  6. OLANZAPINE [Concomitant]

REACTIONS (15)
  - BRADYCARDIA [None]
  - CONDITION AGGRAVATED [None]
  - DIABETIC DERMOPATHY [None]
  - DRUG INTERACTION [None]
  - HYPERLIPIDAEMIA [None]
  - HYPERTENSION [None]
  - HYPOTENSION [None]
  - NAUSEA [None]
  - NODAL RHYTHM [None]
  - PALLOR [None]
  - SINOATRIAL BLOCK [None]
  - SOMNOLENCE [None]
  - SYNCOPE [None]
  - UNEVALUABLE EVENT [None]
  - VERTIGO [None]
